FAERS Safety Report 6809574-4 (Version None)
Quarter: 2010Q2

REPORT INFORMATION
  Report Type: 
  Country: None (occurrence: None)
  Receive Date: 20100630
  Receipt Date: 20100624
  Transmission Date: 20101027
  Serious: Yes (Death, Other)
  Sender: FDA-Public Use
  Company Number: PHHY2010DE21719

PATIENT
  Age: 78 Year
  Sex: Female
  Weight: 90 kg

DRUGS (5)
  1. CLOZAPINE [Suspect]
     Indication: PSYCHOTIC DISORDER
     Dosage: 25 MG, QD
  2. NACOM [Concomitant]
     Indication: PARKINSON'S DISEASE
     Dosage: 1000 MG, QD
  3. CELEBREX [Concomitant]
     Dosage: 200 MG
  4. ENALAPRIL MALEATE [Concomitant]
     Dosage: 5 MG, QD
  5. MCP [Concomitant]

REACTIONS (6)
  - BLOOD LACTATE DEHYDROGENASE INCREASED [None]
  - BLOOD UREA INCREASED [None]
  - BRAIN NATRIURETIC PEPTIDE INCREASED [None]
  - C-REACTIVE PROTEIN INCREASED [None]
  - GAMMA-GLUTAMYLTRANSFERASE INCREASED [None]
  - SUDDEN DEATH [None]
